FAERS Safety Report 9565219 (Version 1)
Quarter: 2013Q3

REPORT INFORMATION
  Report Type: Spontaneous
  Country: US (occurrence: US)
  Receive Date: 20130930
  Receipt Date: 20130930
  Transmission Date: 20140515
  Serious: No
  Sender: FDA-Public Use
  Company Number: US-VIIV HEALTHCARE LIMITED-A1020649A

PATIENT
  Age: 14 Year
  Sex: Female

DRUGS (2)
  1. EPZICOM [Suspect]
     Indication: PRODUCT USED FOR UNKNOWN INDICATION
     Route: 065
  2. ZIAGEN [Concomitant]

REACTIONS (2)
  - Hypersensitivity [Unknown]
  - HLA-B*5701 assay [Unknown]
